FAERS Safety Report 24771033 (Version 1)
Quarter: 2024Q4

REPORT INFORMATION
  Report Type: Spontaneous
  Country: US (occurrence: None)
  Receive Date: 20241224
  Receipt Date: 20241224
  Transmission Date: 20250114
  Serious: Yes (Disabling)
  Sender: Public
  Company Number: None

PATIENT
  Age: 47 Year
  Sex: Female
  Weight: 55.35 kg

DRUGS (6)
  1. FINASTERIDE [Suspect]
     Active Substance: FINASTERIDE
     Indication: Alopecia
     Dosage: 30 TABLETS DAILY ORAL
     Route: 048
     Dates: start: 20240906, end: 20240930
  2. IM testosterone cypionate [Concomitant]
  3. CLARITIN [Concomitant]
     Active Substance: LORATADINE
  4. NM-6603 [Concomitant]
     Active Substance: NM-6603
  5. VITAMIN B COMPLEX [Concomitant]
     Active Substance: CYANOCOBALAMIN\DEXPANTHENOL\NIACINAMIDE\PYRIDOXINE HYDROCHLORIDE\RIBOFLAVIN 5^-PHOSPHATE SODIUM\THIA
  6. FISH OIL [Concomitant]
     Active Substance: FISH OIL

REACTIONS (15)
  - Impaired quality of life [None]
  - Breast swelling [None]
  - Breast tenderness [None]
  - Breast pain [None]
  - Pain [None]
  - Depressed mood [None]
  - Insomnia [None]
  - Anorgasmia [None]
  - Abdominal distension [None]
  - Sexual dysfunction [None]
  - Decreased activity [None]
  - Renal pain [None]
  - Onychoclasis [None]
  - Constipation [None]
  - Menstrual disorder [None]

NARRATIVE: CASE EVENT DATE: 20240916
